FAERS Safety Report 9973890 (Version 1)
Quarter: 2014Q1

REPORT INFORMATION
  Report Type: Spontaneous
  Country: US (occurrence: US)
  Receive Date: 20140306
  Receipt Date: 20140306
  Transmission Date: 20141002
  Serious: Yes (Other)
  Sender: FDA-Public Use
  Company Number: US-TEVA-467248USA

PATIENT
  Sex: Female

DRUGS (2)
  1. PLAN B ONE-STEP [Suspect]
     Indication: POST COITAL CONTRACEPTION
     Dosage: 1.5 MILLIGRAM DAILY;
     Route: 048
     Dates: start: 20140304, end: 20140304
  2. ANTIEPILEPTICS [Concomitant]
     Indication: CONVULSION

REACTIONS (2)
  - Convulsion [Recovered/Resolved]
  - Vomiting [Recovered/Resolved]
